FAERS Safety Report 5766945-5 (Version None)
Quarter: 2008Q2

REPORT INFORMATION
  Report Type: 
  Country: None (occurrence: None)
  Receive Date: 20080612
  Receipt Date: 20080604
  Transmission Date: 20081010
  Serious: Yes (Hospitalization)
  Sender: FDA-Public Use
  Company Number: AT-JNJFOC-20080602150

PATIENT
  Age: 66 Year
  Sex: Female
  Weight: 72.8 kg

DRUGS (8)
  1. DOXORUBICIN HCL [Suspect]
     Indication: BREAST CANCER
     Route: 042
  2. HYDAL [Concomitant]
     Route: 065
  3. SPIROBENE [Concomitant]
     Route: 065
  4. THYREX [Concomitant]
     Route: 065
  5. NAPROXEN [Concomitant]
     Route: 065
  6. CALCIUM [Concomitant]
     Route: 065
  7. POTASSIUM CHLORIDE [Concomitant]
     Route: 065
  8. LANSOPRAZOLE [Concomitant]
     Route: 065

REACTIONS (2)
  - HYPOKALAEMIA [None]
  - PERFORMANCE STATUS DECREASED [None]
